FAERS Safety Report 9587320 (Version 1)
Quarter: 2013Q4

REPORT INFORMATION
  Report Type: Spontaneous
  Country: US (occurrence: None)
  Receive Date: 20131003
  Receipt Date: 20131003
  Transmission Date: 20140711
  Serious: Yes (Life-Threatening, Disabling)
  Sender: FDA-Public Use
  Company Number: None

PATIENT
  Age: 48 Year
  Sex: Male
  Weight: 104.33 kg

DRUGS (1)
  1. DESMOPRESSIN [Suspect]
     Indication: HYPOPITUITARISM
     Dosage: 2 SPRAY

REACTIONS (4)
  - Product tampering [None]
  - Product quality issue [None]
  - Diabetes mellitus [None]
  - Blood cholesterol increased [None]
